FAERS Safety Report 14936284 (Version 1)
Quarter: 2018Q2

REPORT INFORMATION
  Report Type: Spontaneous
  Country: US (occurrence: US)
  Receive Date: 20180524
  Receipt Date: 20180524
  Transmission Date: 20180711
  Serious: Yes (Other)
  Sender: FDA-Public Use
  Company Number: US-ASTRAZENECA-2018SE67739

PATIENT
  Age: 12 Year

DRUGS (1)
  1. FASENRA [Suspect]
     Active Substance: BENRALIZUMAB
     Indication: EOSINOPHILIC OESOPHAGITIS
     Dosage: 30MG/ML EVERY EIGHT WEEKS
     Route: 058
     Dates: start: 201802

REACTIONS (4)
  - Product use in unapproved indication [Unknown]
  - Off label use [Unknown]
  - Seizure [Unknown]
  - Sensory loss [Unknown]

NARRATIVE: CASE EVENT DATE: 201802
